FAERS Safety Report 9452322 (Version 2)
Quarter: 2013Q4

REPORT INFORMATION
  Report Type: Spontaneous
  Country: CA (occurrence: CA)
  Receive Date: 20130812
  Receipt Date: 20131206
  Transmission Date: 20140711
  Serious: Yes (Hospitalization)
  Sender: FDA-Public Use
  Company Number: CA-ELI_LILLY_AND_COMPANY-CA201308000263

PATIENT
  Age: 59 Year
  Sex: Female

DRUGS (4)
  1. CYMBALTA [Suspect]
     Indication: DEPRESSION
     Dosage: 60 MG, QD
     Route: 048
     Dates: start: 201210, end: 201302
  2. ELTROXIN [Concomitant]
     Dosage: 0.05 MG, QD
     Route: 048
  3. LAMICTAL [Concomitant]
     Dosage: 300 MG, QD
     Route: 048
  4. LITHIUM [Concomitant]
     Dosage: 900 MG, QD
     Route: 048

REACTIONS (2)
  - Cerebral haemorrhage [Recovered/Resolved]
  - Blood pressure increased [Recovered/Resolved]
